FAERS Safety Report 24732891 (Version 2)
Quarter: 2024Q4

REPORT INFORMATION
  Report Type: Report from Study
  Country: CN (occurrence: CN)
  Receive Date: 20241213
  Receipt Date: 20241223
  Transmission Date: 20250115
  Serious: Yes (Other)
  Sender: PFIZER
  Company Number: CN-TAKEDA-2023TUS039634

PATIENT
  Age: 22 Year
  Sex: Female
  Weight: 60 kg

DRUGS (9)
  1. ADCETRIS [Suspect]
     Active Substance: BRENTUXIMAB VEDOTIN
     Indication: Hodgkin^s disease nodular sclerosis
     Dosage: 72 MILLIGRAM, Q2WEEKS
     Route: 041
     Dates: start: 20230214
  2. EPIRUBICIN HYDROCHLORIDE [Suspect]
     Active Substance: EPIRUBICIN HYDROCHLORIDE
     Indication: Lymphoma
     Dosage: 58 MILLIGRAM, QD
     Route: 041
     Dates: start: 20230214, end: 20230214
  3. DACARBAZINE [Suspect]
     Active Substance: DACARBAZINE
     Indication: Lymphoma
     Dosage: 626 MILLIGRAM, QD
     Route: 041
     Dates: start: 20230214, end: 20230214
  4. VINDESINE [Suspect]
     Active Substance: VINDESINE
     Indication: Lymphoma
     Dosage: 4 MILLIGRAM, QD
     Route: 041
     Dates: start: 20230214, end: 20230214
  5. GLYCOSAMINOGLYCANS [Concomitant]
     Active Substance: GLYCOSAMINOGLYCANS
     Indication: Prophylaxis
     Dosage: UNK UNK, 1/WEEK
     Route: 061
     Dates: start: 20230214
  6. DEXAMETHASONE [Concomitant]
     Active Substance: DEXAMETHASONE
     Indication: Prophylaxis
     Dosage: 5 MILLIGRAM
     Route: 041
     Dates: start: 20230214, end: 20230214
  7. OMEPRAZOLE [Concomitant]
     Active Substance: OMEPRAZOLE
     Indication: Prophylaxis
     Dosage: 20 MILLIGRAM
     Route: 048
     Dates: start: 20230214, end: 20230214
  8. SULFAMETHOXAZOLE [Concomitant]
     Active Substance: SULFAMETHOXAZOLE
     Indication: Prophylaxis
     Dosage: UNK UNK, QD
     Route: 048
     Dates: start: 20230215
  9. ACYCLOVIR [Concomitant]
     Active Substance: ACYCLOVIR
     Indication: Antiviral prophylaxis
     Dosage: UNK UNK, BID
     Route: 048
     Dates: start: 20230215

REACTIONS (2)
  - Neurotoxicity [Not Recovered/Not Resolved]
  - Off label use [Recovered/Resolved]

NARRATIVE: CASE EVENT DATE: 20230214
